FAERS Safety Report 17172751 (Version 2)
Quarter: 2020Q1

REPORT INFORMATION
  Report Type: Spontaneous
  Country: US (occurrence: US)
  Receive Date: 20191219
  Receipt Date: 20200227
  Transmission Date: 20200409
  Serious: Yes (Other)
  Sender: FDA-Public Use
  Company Number: US-SA-2019SA348413

PATIENT
  Age: 59 Year
  Sex: Female
  Weight: 62 kg

DRUGS (31)
  1. TAXOTERE [Suspect]
     Active Substance: DOCETAXEL
     Dosage: 493.8 UNK
     Route: 042
     Dates: start: 20160331, end: 20160331
  2. PARAPLATIN [Concomitant]
     Active Substance: CARBOPLATIN
     Indication: BREAST CANCER FEMALE
     Dosage: 493.8 MG, Q3W
     Dates: start: 20160218, end: 20160218
  3. PARAPLATIN [Concomitant]
     Active Substance: CARBOPLATIN
     Dosage: 493.8 MG, Q3W
     Dates: start: 20160310, end: 20160310
  4. PARAPLATIN [Concomitant]
     Active Substance: CARBOPLATIN
     Dosage: 523.2 MG, Q3W
     Dates: start: 20160512, end: 20160512
  5. PERJETA [Concomitant]
     Active Substance: PERTUZUMAB
     Indication: BREAST CANCER FEMALE
     Dosage: 840 MG, Q3W
     Route: 065
     Dates: start: 20160218, end: 20160218
  6. ZARXIO [Concomitant]
     Active Substance: FILGRASTIM-SNDZ
     Dosage: UNK
  7. TAXOTERE [Suspect]
     Active Substance: DOCETAXEL
     Dosage: 493.8 UNK
     Route: 042
     Dates: start: 20160310, end: 20160310
  8. HERCEPTIN [Concomitant]
     Active Substance: TRASTUZUMAB
     Dosage: 366.6 MG, Q3W
     Dates: start: 20160512, end: 20160512
  9. HERCEPTIN [Concomitant]
     Active Substance: TRASTUZUMAB
     Dosage: 366.6 MG, Q3W
     Dates: start: 20160602, end: 20160602
  10. LIPITOR [Concomitant]
     Active Substance: ATORVASTATIN CALCIUM
     Dosage: UNK
     Dates: start: 1974
  11. TAXOTERE [Suspect]
     Active Substance: DOCETAXEL
     Dosage: 99 MG, Q3W
     Route: 042
     Dates: start: 20160602, end: 20160602
  12. HERCEPTIN [Concomitant]
     Active Substance: TRASTUZUMAB
     Dosage: 366.6 MG, Q3W
     Dates: start: 20160331, end: 20160331
  13. ZOFRAN [Concomitant]
     Active Substance: ONDANSETRON HYDROCHLORIDE
     Dosage: UNK
     Dates: start: 1974
  14. PARAPLATIN [Concomitant]
     Active Substance: CARBOPLATIN
     Dosage: 567.6 MG, Q3W
     Dates: start: 20160421, end: 20160421
  15. HERCEPTIN [Concomitant]
     Active Substance: TRASTUZUMAB
     Indication: BREAST CANCER FEMALE
     Dosage: 488.8 MG, Q3W
     Dates: start: 20160218, end: 20160218
  16. EMEND [FOSAPREPITANT MEGLUMINE] [Concomitant]
  17. ARIMIDEX [Concomitant]
     Active Substance: ANASTROZOLE
     Dosage: UNK
     Dates: start: 1974
  18. PARAPLATIN [Concomitant]
     Active Substance: CARBOPLATIN
     Dosage: 523.2 MG, Q3W
     Dates: start: 20160602, end: 20160602
  19. PERJETA [Concomitant]
     Active Substance: PERTUZUMAB
     Dosage: 420 MG, Q3W
     Route: 065
     Dates: start: 20160421, end: 20160421
  20. HERCEPTIN [Concomitant]
     Active Substance: TRASTUZUMAB
     Dosage: 366.6 MG, Q3W
     Dates: start: 20160310, end: 20160310
  21. PERJETA [Concomitant]
     Active Substance: PERTUZUMAB
     Dosage: 420 MG, Q3W
     Route: 065
     Dates: start: 20160331, end: 20160331
  22. DECADRON [Concomitant]
     Active Substance: DEXAMETHASONE
     Dosage: UNK
  23. HERCEPTIN [Concomitant]
     Active Substance: TRASTUZUMAB
     Dosage: 366.6 MG, Q3W
     Dates: start: 20160421, end: 20160421
  24. ZOMETA [Concomitant]
     Active Substance: ZOLEDRONIC ACID
     Dosage: UNK
  25. NAPROXEN. [Concomitant]
     Active Substance: NAPROXEN
  26. TAXOTERE [Suspect]
     Active Substance: DOCETAXEL
     Indication: BREAST CANCER FEMALE
     Dosage: 123.8 MG, Q3W
     Route: 042
     Dates: start: 20160218, end: 20160218
  27. PARAPLATIN [Concomitant]
     Active Substance: CARBOPLATIN
     Dosage: 493.8 MG, Q3W
     Dates: start: 20160331, end: 20160331
  28. PERJETA [Concomitant]
     Active Substance: PERTUZUMAB
     Dosage: 420 MG, Q3W
     Route: 065
     Dates: start: 20160310, end: 20160310
  29. PERJETA [Concomitant]
     Active Substance: PERTUZUMAB
     Dosage: 420 MG, Q3W
     Route: 065
     Dates: start: 20160512, end: 20160512
  30. PERJETA [Concomitant]
     Active Substance: PERTUZUMAB
     Dosage: 420 MG, Q3W
     Route: 065
     Dates: start: 20160602, end: 20160602
  31. NEULASTA [Concomitant]
     Active Substance: PEGFILGRASTIM
     Dosage: UNK

REACTIONS (2)
  - Psychological trauma [Unknown]
  - Alopecia [Recovering/Resolving]

NARRATIVE: CASE EVENT DATE: 20160308
